FAERS Safety Report 23913406 (Version 2)
Quarter: 2024Q2

REPORT INFORMATION
  Report Type: Report from Study
  Country: CA (occurrence: CA)
  Receive Date: 20240529
  Receipt Date: 20240612
  Transmission Date: 20240715
  Serious: Yes (Hospitalization, Other)
  Sender: FDA-Public Use
  Company Number: CA-TAKEDA-2023TUS108474

PATIENT
  Age: 31 Year
  Sex: Male

DRUGS (16)
  1. PONATINIB [Suspect]
     Active Substance: PONATINIB
     Indication: Chronic myeloid leukaemia
     Dosage: 45 MILLIGRAM, QD
     Route: 048
     Dates: start: 20231031
  2. ACYCLOVIR [Concomitant]
     Active Substance: ACYCLOVIR
     Dosage: UNK
     Route: 065
  3. ALLOPURINOL [Concomitant]
     Active Substance: ALLOPURINOL
     Dosage: UNK
     Route: 065
  4. AZACITIDINE [Concomitant]
     Active Substance: AZACITIDINE
     Dosage: UNK
     Route: 065
  5. HYDROMORPHONE [Concomitant]
     Active Substance: HYDROMORPHONE
     Dosage: UNK
     Route: 065
  6. LANSOPRAZOLE [Concomitant]
     Active Substance: LANSOPRAZOLE
     Dosage: UNK
     Route: 065
  7. OLANZAPINE [Concomitant]
     Active Substance: OLANZAPINE
     Dosage: UNK
     Route: 065
  8. ONDANSETRON [Concomitant]
     Active Substance: ONDANSETRON
     Dosage: UNK
     Route: 065
  9. SODIUM CHLORIDE [Concomitant]
     Active Substance: SODIUM CHLORIDE
     Dosage: UNK
     Route: 065
  10. VENETOCLAX [Concomitant]
     Active Substance: VENETOCLAX
     Dosage: UNK
     Route: 065
  11. ACETAMINOPHEN [Concomitant]
     Active Substance: ACETAMINOPHEN
     Dosage: UNK
     Route: 065
  12. MELATONIN [Concomitant]
     Active Substance: MELATONIN
     Dosage: UNK
     Route: 065
  13. SENNOSIDES [Concomitant]
     Active Substance: SENNOSIDES
     Dosage: UNK
     Route: 065
  14. SODIUM PHOSPHATE [Concomitant]
     Active Substance: SODIUM PHOSPHATE
     Dosage: UNK
     Route: 065
  15. ZOPICLONE [Concomitant]
     Active Substance: ZOPICLONE
     Dosage: UNK
     Route: 065
  16. TYLENOL EXTRA STRENGTH [Concomitant]
     Active Substance: ACETAMINOPHEN
     Dosage: 1000 MILLIGRAM
     Route: 065

REACTIONS (4)
  - Graft versus host disease [Unknown]
  - Pyrexia [Recovered/Resolved]
  - Pneumonia [Recovered/Resolved]
  - Platelet count decreased [Recovering/Resolving]

NARRATIVE: CASE EVENT DATE: 20231031
